FAERS Safety Report 8005367-3 (Version None)
Quarter: 2011Q4

REPORT INFORMATION
  Report Type: 
  Country: None (occurrence: None)
  Receive Date: 20111223
  Receipt Date: 20111221
  Transmission Date: 20120403
  Serious: Yes (Life-Threatening)
  Sender: FDA-Public Use
  Company Number: FR-PFIZER INC-2011309475

PATIENT
  Age: 42 Year
  Sex: Female

DRUGS (3)
  1. XANAX [Suspect]
     Dosage: UNK
     Route: 048
     Dates: end: 20040217
  2. IMOVANE [Suspect]
     Dosage: UNK
     Route: 048
     Dates: end: 20040217
  3. PAROXETINE HCL [Suspect]
     Dosage: UNK
     Route: 048
     Dates: end: 20040217

REACTIONS (2)
  - LIVER TRANSPLANT [None]
  - HEPATITIS FULMINANT [None]
